FAERS Safety Report 9689200 (Version 3)
Quarter: 2014Q3

REPORT INFORMATION
  Report Type: Spontaneous
  Country: JP (occurrence: JP)
  Receive Date: 20131114
  Receipt Date: 20140714
  Transmission Date: 20150326
  Serious: Yes (Other)
  Sender: FDA-Public Use
  Company Number: JP-GE HEALTHCARE MEDICAL DIAGNOSTICS-OMPQ-PR-1310S-1225

PATIENT
  Age: 67 Year
  Sex: Male

DRUGS (27)
  1. BAYASPIRIN [Concomitant]
     Active Substance: ASPIRIN
     Route: 065
     Dates: start: 20130914
  2. BASEN OD [Concomitant]
     Active Substance: VOGLIBOSE
     Route: 065
     Dates: start: 20130914
  3. NESP [Concomitant]
     Active Substance: DARBEPOETIN ALFA
     Route: 042
     Dates: start: 20130914
  4. OMNIPAQUE [Suspect]
     Active Substance: IOHEXOL
     Indication: DIAGNOSTIC PROCEDURE
  5. EVIPROSTAT DB [Concomitant]
     Route: 065
     Dates: start: 20130914
  6. RISPERDAL [Concomitant]
     Active Substance: RISPERIDONE
     Route: 048
  7. GASTER [Concomitant]
     Active Substance: FAMOTIDINE
     Route: 065
     Dates: start: 20130914
  8. GASTER [Concomitant]
     Active Substance: FAMOTIDINE
     Route: 065
     Dates: start: 20130914
  9. FOLIAMIN [Concomitant]
     Active Substance: FOLIC ACID
     Route: 065
     Dates: start: 20130914
  10. HISICEOL [Concomitant]
     Route: 042
     Dates: start: 20130914
  11. BAYASPIRIN [Concomitant]
     Active Substance: ASPIRIN
     Route: 065
     Dates: start: 20130914
  12. BASEN OD [Concomitant]
     Active Substance: VOGLIBOSE
     Route: 065
     Dates: start: 20130914
  13. GLUFAST [Concomitant]
     Active Substance: MITIGLINIDE
     Route: 065
     Dates: start: 20130914
  14. UNISIA HD [Concomitant]
     Route: 065
     Dates: start: 20130914
  15. PURSENNID [Concomitant]
     Active Substance: SENNOSIDES A AND B CALCIUM
     Route: 065
     Dates: start: 20130914
  16. METGLUCO [Concomitant]
     Active Substance: METFORMIN HYDROCHLORIDE
     Route: 065
     Dates: start: 20130914
  17. FERRUM [Concomitant]
     Active Substance: FERROUS FUMARATE
     Route: 065
     Dates: start: 20130914
  18. EVIPROSTAT DB [Concomitant]
     Route: 065
     Dates: start: 20130914
  19. ROHYPNOL [Concomitant]
     Active Substance: FLUNITRAZEPAM
     Route: 065
     Dates: start: 20130914
  20. VEEN-F [Concomitant]
     Route: 042
     Dates: start: 20130914
  21. FESIN [Concomitant]
     Active Substance: IRON SUCROSE
     Route: 042
     Dates: start: 20130914
  22. OMNIPAQUE [Suspect]
     Active Substance: IOHEXOL
     Indication: PRODUCT USED FOR UNKNOWN INDICATION
     Route: 013
     Dates: start: 20130911, end: 20130911
  23. HEPARIN [Concomitant]
     Active Substance: HEPARIN SODIUM
     Route: 065
  24. CILOSTAZOL. [Concomitant]
     Active Substance: CILOSTAZOL
     Route: 065
  25. ACTOS [Concomitant]
     Active Substance: PIOGLITAZONE HYDROCHLORIDE
     Route: 065
     Dates: start: 20130914
  26. PROMAC [Concomitant]
     Active Substance: NITROFURANTOIN
     Route: 065
     Dates: start: 20130914
  27. SODIUM CHLORIDE. [Concomitant]
     Active Substance: SODIUM CHLORIDE
     Route: 042
     Dates: start: 20130914

REACTIONS (2)
  - Renal failure acute [Recovering/Resolving]
  - Somnolence [Recovering/Resolving]

NARRATIVE: CASE EVENT DATE: 20130913
